FAERS Safety Report 4808542-1 (Version None)
Quarter: 2005Q4

REPORT INFORMATION
  Report Type: 
  Country: None (occurrence: None)
  Receive Date: 20051021
  Receipt Date: 20020125
  Transmission Date: 20060501
  Serious: No
  Sender: FDA-Public Use
  Company Number: US_020281287

PATIENT
  Sex: Female
  Weight: 84 kg

DRUGS (1)
  1. ZYPREXA [Suspect]
     Dosage: 20 MG/DAY
     Route: 048
     Dates: start: 20010701

REACTIONS (4)
  - MENSTRUATION IRREGULAR [None]
  - OBESITY [None]
  - POLYDIPSIA [None]
  - THIRST [None]
